FAERS Safety Report 14168515 (Version 1)
Quarter: 2017Q4

REPORT INFORMATION
  Report Type: Spontaneous
  Country: US (occurrence: None)
  Receive Date: 20171107
  Receipt Date: 20171107
  Transmission Date: 20180321
  Serious: No
  Sender: FDA-Public Use
  Company Number: None

PATIENT
  Age: 56 Year
  Sex: Female

DRUGS (1)
  1. CAPECITABINE 500MG WEST-WARD PHARMACEUTICAL [Suspect]
     Active Substance: CAPECITABINE
     Indication: RECTAL NEOPLASM
     Route: 048
     Dates: start: 20171011

REACTIONS (4)
  - Palmar-plantar erythrodysaesthesia syndrome [None]
  - Fatigue [None]
  - Nausea [None]
  - Constipation [None]

NARRATIVE: CASE EVENT DATE: 20171025
